FAERS Safety Report 16976967 (Version 1)
Quarter: 2019Q4

REPORT INFORMATION
  Report Type: Report from Study
  Country: US (occurrence: US)
  Receive Date: 20191030
  Receipt Date: 20191030
  Transmission Date: 20200122
  Serious: Yes (Other)
  Sender: FDA-Public Use
  Company Number: US-BRISTOL-MYERS SQUIBB COMPANY-BMS-2019-100009

PATIENT
  Age: 12 Month
  Sex: Female

DRUGS (1)
  1. ABATACEPT [Suspect]
     Active Substance: ABATACEPT
     Indication: PRODUCT USED FOR UNKNOWN INDICATION
     Dosage: 125 MG (TITER), QWK
     Route: 058

REACTIONS (3)
  - Accidental exposure to product by child [Unknown]
  - Injury associated with device [Unknown]
  - Haemorrhage [Unknown]

NARRATIVE: CASE EVENT DATE: 20191015
